FAERS Safety Report 10926997 (Version 1)
Quarter: 2015Q1

REPORT INFORMATION
  Report Type: Spontaneous
  Country: US (occurrence: None)
  Receive Date: 20150316
  Receipt Date: 20150316
  Transmission Date: 20150721
  Serious: Yes (Other)
  Sender: FDA-Public Use
  Company Number: 2785265

PATIENT
  Age: 68 Year

DRUGS (4)
  1. CYCLOPHOSPHAMIDE. [Suspect]
     Active Substance: CYCLOPHOSPHAMIDE
     Indication: CHRONIC LYMPHOCYTIC LEUKAEMIA
     Dosage: NOT OTHERWISE SPECIFIED
     Route: 042
     Dates: start: 20111207, end: 20120118
  2. VINCRISTINE SULFATE. [Suspect]
     Active Substance: VINCRISTINE SULFATE
     Indication: CHRONIC LYMPHOCYTIC LEUKAEMIA
     Dosage: NOT OTHERWISE SPECIFIED
     Route: 042
     Dates: start: 20111207, end: 20120118
  3. PREDNISONE. [Suspect]
     Active Substance: PREDNISONE
     Indication: CHRONIC LYMPHOCYTIC LEUKAEMIA
     Route: 048
     Dates: start: 20111207, end: 20120118
  4. DOXORUBICIN [Suspect]
     Active Substance: DOXORUBICIN
     Indication: CHRONIC LYMPHOCYTIC LEUKAEMIA
     Dosage: NOT OTHERWISE SPECIFIED
     Route: 042
     Dates: start: 20111207, end: 20111228

REACTIONS (1)
  - Pneumonia [None]

NARRATIVE: CASE EVENT DATE: 20120127
